FAERS Safety Report 12844381 (Version 3)
Quarter: 2016Q4

REPORT INFORMATION
  Report Type: Spontaneous
  Country: FI (occurrence: FI)
  Receive Date: 20161013
  Receipt Date: 20161130
  Transmission Date: 20170207
  Serious: Yes (Hospitalization, Other)
  Sender: FDA-Public Use
  Company Number: PHHY2016FI139453

PATIENT
  Age: 75 Year
  Sex: Male

DRUGS (14)
  1. COTRIM FORTE [Concomitant]
     Active Substance: SULFAMETHOXAZOLE\TRIMETHOPRIM
     Indication: PNEUMONIA
     Dosage: 160 MG/800 MG TWICE A WEEK FOR EXAMPLE ON MONDAY AND ON THURSDAY
     Route: 048
  2. DEXAMETASON [Concomitant]
     Active Substance: DEXAMETHASONE
     Indication: PRODUCT USED FOR UNKNOWN INDICATION
     Dosage: ACCORDING TO SEPARATE INSTRUCTIONS
     Route: 048
     Dates: end: 20160525
  3. CAPRILON [Concomitant]
     Indication: PRODUCT USED FOR UNKNOWN INDICATION
     Dosage: PREOPERATIVE
     Route: 065
  4. ASASANTIN - SLOW RELEASE [Concomitant]
     Indication: PRODUCT USED FOR UNKNOWN INDICATION
     Dosage: 1 DF, BID
     Route: 048
  5. SIMVASTATIN ACTAVIS [Concomitant]
     Active Substance: SIMVASTATIN
     Indication: PRODUCT USED FOR UNKNOWN INDICATION
     Dosage: 1 DF, QD
     Route: 048
  6. ACLOVIR [Concomitant]
     Indication: PRODUCT USED FOR UNKNOWN INDICATION
     Dosage: 1 DF, QD
     Route: 048
  7. SOMAC [Concomitant]
     Active Substance: PANTOPRAZOLE SODIUM
     Indication: PRODUCT USED FOR UNKNOWN INDICATION
     Dosage: 20 MG, QD (GASTRO-RESISTANT TABLET)
     Route: 048
  8. VELCADE [Concomitant]
     Active Substance: BORTEZOMIB
     Indication: PRODUCT USED FOR UNKNOWN INDICATION
     Dosage: ACCORDING TO SEPARATE INSTRUCTIONS
     Route: 058
     Dates: end: 20160525
  9. PARATAB [Concomitant]
     Indication: PRODUCT USED FOR UNKNOWN INDICATION
     Dosage: 1 G, PRN (1 G WHEN NEEDED (MAXIMUM 3 G A DAY))
     Route: 048
  10. DIOVAN [Concomitant]
     Active Substance: VALSARTAN
     Indication: PRODUCT USED FOR UNKNOWN INDICATION
     Dosage: 40 MG, QD
     Route: 048
  11. KALCIPOS-D [Concomitant]
     Active Substance: CALCIUM CARBONATE\CHOLECALCIFEROL
     Indication: PRODUCT USED FOR UNKNOWN INDICATION
     Dosage: 1 DF, BID (1 TABLET (500 MG/400 IU) TWICE A DAY)
     Route: 048
  12. AMLODIPINE [Concomitant]
     Active Substance: AMLODIPINE BESYLATE
     Indication: PRODUCT USED FOR UNKNOWN INDICATION
     Dosage: 1 DF, QD
     Route: 048
     Dates: end: 20150902
  13. PROPRANOLOL [Concomitant]
     Active Substance: PROPRANOLOL\PROPRANOLOL HYDROCHLORIDE
     Indication: PRODUCT USED FOR UNKNOWN INDICATION
     Dosage: 100 MG, BID
     Route: 048
     Dates: end: 20160915
  14. ZOMETA [Suspect]
     Active Substance: ZOLEDRONIC ACID
     Indication: PLASMA CELL MYELOMA
     Dosage: 3 MG, (3 MG EVERY 2 MONTHS)
     Route: 042
     Dates: start: 20030819, end: 20160729

REACTIONS (23)
  - Tooth loss [Recovered/Resolved]
  - Pyrexia [Recovered/Resolved]
  - Tooth infection [Recovered/Resolved]
  - Pyrexia [Recovered/Resolved]
  - C-reactive protein increased [Unknown]
  - Noninfective gingivitis [Recovered/Resolved]
  - Oral cavity fistula [Recovered/Resolved]
  - Plasma cell myeloma recurrent [Unknown]
  - Osteonecrosis [Recovered/Resolved]
  - Exposed bone in jaw [Recovered/Resolved]
  - Cellulitis [Recovered/Resolved]
  - Swelling face [Recovered/Resolved]
  - Platelet count decreased [Unknown]
  - Periodontitis [Recovered/Resolved]
  - Pain [Recovered/Resolved]
  - Osteitis [Unknown]
  - Haemoglobin decreased [Unknown]
  - Tooth disorder [Recovered/Resolved]
  - White blood cell count increased [Recovering/Resolving]
  - Abscess oral [Recovered/Resolved]
  - Oral infection [Recovered/Resolved]
  - Oral disorder [Recovered/Resolved]
  - Impaired healing [Recovered/Resolved]

NARRATIVE: CASE EVENT DATE: 2015
